FAERS Safety Report 7094790-X (Version None)
Quarter: 2010Q4

REPORT INFORMATION
  Report Type: 
  Country: None (occurrence: None)
  Receive Date: 20101110
  Receipt Date: 20101104
  Transmission Date: 20110411
  Serious: Yes (Hospitalization)
  Sender: FDA-Public Use
  Company Number: BR-ABBOTT-10P-020-0683511-00

PATIENT
  Sex: Female
  Weight: 58 kg

DRUGS (3)
  1. HUMIRA [Suspect]
     Indication: CROHN'S DISEASE
     Dosage: INDUCTION DOSE: 160MG 80MG 15DAYS
     Route: 058
     Dates: start: 20090101
  2. HUMIRA [Suspect]
     Dosage: LOADING DOSE
     Dates: start: 20090101, end: 20090101
  3. HUMIRA [Suspect]
     Dosage: LOADING DOSE
     Dates: start: 20090101, end: 20090101

REACTIONS (2)
  - CROHN'S DISEASE [None]
  - MALNUTRITION [None]
